FAERS Safety Report 9242303 (Version 2)
Quarter: 2013Q3

REPORT INFORMATION
  Report Type: Spontaneous
  Country: US (occurrence: US)
  Receive Date: 20130419
  Receipt Date: 20130723
  Transmission Date: 20140515
  Serious: No
  Sender: FDA-Public Use
  Company Number: US-PFIZER INC-2013121286

PATIENT
  Sex: Female

DRUGS (1)
  1. FLAGYL [Suspect]
     Dosage: UNK
     Dates: start: 20111111

REACTIONS (3)
  - Nausea [Unknown]
  - Weight decreased [Unknown]
  - Decreased appetite [Unknown]
